FAERS Safety Report 10283718 (Version 2)
Quarter: 2014Q3

REPORT INFORMATION
  Report Type: Spontaneous
  Country: US (occurrence: US)
  Receive Date: 20140708
  Receipt Date: 20140804
  Transmission Date: 20150326
  Serious: Yes (Other)
  Sender: FDA-Public Use
  Company Number: US-PFIZER INC-2014185921

PATIENT
  Age: 44 Year
  Sex: Female
  Weight: 83.9 kg

DRUGS (1)
  1. LYRICA [Suspect]
     Active Substance: PREGABALIN
     Dosage: 150 MG, 2X/DAY
     Route: 048
     Dates: start: 2008, end: 201406

REACTIONS (7)
  - Speech disorder [Unknown]
  - Vocal cord disorder [Unknown]
  - Neoplasm malignant [Unknown]
  - Intentional product misuse [Unknown]
  - Hearing impaired [Unknown]
  - Renal cell carcinoma [Recovered/Resolved]
  - Dysphagia [Unknown]

NARRATIVE: CASE EVENT DATE: 201309
